FAERS Safety Report 4625127-0 (Version None)
Quarter: 2005Q2

REPORT INFORMATION
  Report Type: 
  Country: None (occurrence: None)
  Receive Date: 20050401
  Receipt Date: 20050322
  Transmission Date: 20051028
  Serious: Yes (Hospitalization)
  Sender: FDA-Public Use
  Company Number: US-GLAXOSMITHKLINE-A0550816A

PATIENT
  Sex: Female

DRUGS (1)
  1. SENSODYNE-F [Suspect]
     Indication: DENTAL CARE
     Dates: start: 19900101

REACTIONS (2)
  - CARDIAC DISORDER [None]
  - CHEST PAIN [None]
